FAERS Safety Report 9383467 (Version 1)
Quarter: 2013Q3

REPORT INFORMATION
  Report Type: Spontaneous
  Country: SE (occurrence: SE)
  Receive Date: 20130704
  Receipt Date: 20130704
  Transmission Date: 20140515
  Serious: Yes (Other)
  Sender: FDA-Public Use
  Company Number: SE-PFIZER INC-2013195265

PATIENT
  Age: 64 Year
  Sex: Male

DRUGS (12)
  1. CHAMPIX [Suspect]
     Dosage: 1 MG, 1X/DAY
     Route: 048
     Dates: start: 20130311, end: 20130505
  2. NOVORAPID [Concomitant]
     Dosage: 100 IU/ML
  3. SPIRIVA [Concomitant]
     Dosage: UNK
  4. BISOPROLOL [Concomitant]
     Dosage: UNK
  5. ATORVASTATIN [Concomitant]
     Dosage: UNK
  6. AMLODIPINE [Concomitant]
     Dosage: UNK
  7. SODIUM BICARBONATE [Concomitant]
     Dosage: UNK
  8. TROMBYL [Concomitant]
     Dosage: UNK
  9. LOSARTAN [Concomitant]
     Dosage: 100 MG, UNK
  10. FURIX RETARD [Concomitant]
     Dosage: UNK
  11. LANTUS [Concomitant]
     Dosage: UNK
  12. DOXAZOSIN BETAPHARM [Concomitant]
     Dosage: UNK

REACTIONS (10)
  - Fatigue [Recovering/Resolving]
  - Pruritus [Recovering/Resolving]
  - Nausea [Unknown]
  - Hyperglycaemia [Unknown]
  - Arthralgia [Unknown]
  - Myalgia [Not Recovered/Not Resolved]
  - Pollakiuria [Recovered/Resolved]
  - Malaise [Unknown]
  - Asthenia [Unknown]
  - Pain in extremity [Unknown]
